FAERS Safety Report 16944956 (Version 1)
Quarter: 2019Q4

REPORT INFORMATION
  Report Type: Spontaneous
  Country: IN (occurrence: IN)
  Receive Date: 20191022
  Receipt Date: 20191022
  Transmission Date: 20200122
  Serious: Yes (Death, Other)
  Sender: FDA-Public Use
  Company Number: IN-PFIZER INC-2019453043

PATIENT

DRUGS (6)
  1. COLISTIN [Suspect]
     Active Substance: COLISTIN
     Indication: NECROSIS
  2. TIGECYCLINE. [Suspect]
     Active Substance: TIGECYCLINE
     Indication: NECROSIS
  3. AVIBACTAM SODIUM/CEFTAZIDIME PENTAHYDRATE [Suspect]
     Active Substance: AVIBACTAM SODIUM\CEFTAZIDIME
     Indication: NECROSIS
  4. COLISTIN [Suspect]
     Active Substance: COLISTIN
     Indication: PANCREATITIS
     Dosage: UNK
  5. AVIBACTAM SODIUM/CEFTAZIDIME PENTAHYDRATE [Suspect]
     Active Substance: AVIBACTAM SODIUM\CEFTAZIDIME
     Indication: PANCREATITIS
     Dosage: UNK
  6. TIGECYCLINE. [Suspect]
     Active Substance: TIGECYCLINE
     Indication: PANCREATITIS
     Dosage: UNK

REACTIONS (2)
  - Death [Fatal]
  - Candida infection [Unknown]
